FAERS Safety Report 9943012 (Version 2)
Quarter: 2014Q1

REPORT INFORMATION
  Report Type: Spontaneous
  Country: JP (occurrence: JP)
  Receive Date: 20140303
  Receipt Date: 20140324
  Transmission Date: 20141002
  Serious: Yes (Other)
  Sender: FDA-Public Use
  Company Number: JP-BAXTER-2014BAX009278

PATIENT
  Age: 60 Year
  Sex: Female

DRUGS (2)
  1. GAMMAGARD FOR INJECTION 2.5G [Suspect]
     Indication: ENDOCARDITIS
     Dosage: 0.4 G/KG
     Route: 042
  2. MINOCYCLINE [Suspect]
     Indication: CYSTITIS
     Route: 048

REACTIONS (1)
  - Myocarditis [Recovered/Resolved]
